FAERS Safety Report 15451744 (Version 2)
Quarter: 2018Q4

REPORT INFORMATION
  Report Type: Report from Study
  Country: US (occurrence: US)
  Receive Date: 20181001
  Receipt Date: 20181009
  Transmission Date: 20190204
  Serious: Yes (Other)
  Sender: FDA-Public Use
  Company Number: US-ROCHE-2192143

PATIENT
  Sex: Female

DRUGS (4)
  1. XOLAIR [Suspect]
     Active Substance: OMALIZUMAB
     Indication: IDIOPATHIC URTICARIA
     Dosage: 3 INJECTIONS
     Route: 042
  2. TARCEVA [Suspect]
     Active Substance: ERLOTINIB HYDROCHLORIDE
     Indication: LUNG CANCER METASTATIC
     Route: 065
  3. PREDNISONE. [Concomitant]
     Active Substance: PREDNISONE
  4. OSIMERTINIB. [Suspect]
     Active Substance: OSIMERTINIB
     Indication: PRODUCT USED FOR UNKNOWN INDICATION
     Route: 065

REACTIONS (19)
  - Abdominal distension [Unknown]
  - Nausea [Unknown]
  - Flushing [Unknown]
  - Nasal congestion [Unknown]
  - Chills [Unknown]
  - Neutrophilia [Unknown]
  - Pyrexia [Unknown]
  - White blood cell count increased [Unknown]
  - Chest discomfort [Unknown]
  - Dizziness [Unknown]
  - Presyncope [Unknown]
  - Diarrhoea [Unknown]
  - Urticaria [Unknown]
  - Anaphylactic reaction [Unknown]
  - Circulatory collapse [Unknown]
  - Abdominal pain [Unknown]
  - Dyspnoea [Unknown]
  - Hyperhidrosis [Unknown]
  - Vomiting [Unknown]
